FAERS Safety Report 7481089-2 (Version None)
Quarter: 2011Q2

REPORT INFORMATION
  Report Type: 
  Country: None (occurrence: None)
  Receive Date: 20110516
  Receipt Date: 20100521
  Transmission Date: 20111010
  Serious: No
  Sender: FDA-Public Use
  Company Number: US-AMGEN-TCS408432

PATIENT
  Age: 60 Year
  Sex: Male
  Weight: 148 kg

DRUGS (2)
  1. ENBREL [Suspect]
     Indication: PSORIASIS
  2. ENBREL [Suspect]
     Indication: PSORIATIC ARTHROPATHY
     Dosage: 50 MG, QWK
     Route: 058
     Dates: start: 20100317

REACTIONS (4)
  - PAIN OF SKIN [None]
  - EXFOLIATIVE RASH [None]
  - RASH MACULAR [None]
  - PSORIASIS [None]
